FAERS Safety Report 9105634 (Version 1)
Quarter: 2013Q1

REPORT INFORMATION
  Report Type: Spontaneous
  Country: US (occurrence: US)
  Receive Date: 20130220
  Receipt Date: 20130220
  Transmission Date: 20140127
  Serious: Yes (Hospitalization)
  Sender: FDA-Public Use
  Company Number: US-ASTELLAS-2013US001821

PATIENT
  Sex: Male

DRUGS (1)
  1. PROGRAF [Suspect]
     Indication: TRANSPLANT
     Dosage: 5 MG, BID
     Route: 048
     Dates: start: 19991101

REACTIONS (2)
  - Oesophageal dilatation [Unknown]
  - Gastrointestinal disorder [Unknown]
